FAERS Safety Report 17263576 (Version 1)
Quarter: 2020Q1

REPORT INFORMATION
  Report Type: Spontaneous
  Country: US (occurrence: US)
  Receive Date: 20200113
  Receipt Date: 20200113
  Transmission Date: 20200409
  Serious: No
  Sender: FDA-Public Use
  Company Number: US-GW PHARMA-202001USGW00019

PATIENT

DRUGS (2)
  1. EPIDIOLEX [Suspect]
     Active Substance: CANNABIDIOL
     Indication: SEIZURE
     Dosage: 3.67 MG/KG/DAY, 50 MILLIGRAM, BID
     Route: 048
     Dates: start: 2019
  2. VIGABATRIN. [Concomitant]
     Active Substance: VIGABATRIN
     Indication: PRODUCT USED FOR UNKNOWN INDICATION
     Dosage: 500 MILLIGRAM, QD
     Route: 065

REACTIONS (5)
  - Blood ketone body decreased [Unknown]
  - Product odour abnormal [Unknown]
  - Seizure [Unknown]
  - Product packaging quantity issue [Unknown]
  - Drug interaction [Unknown]
